FAERS Safety Report 25402886 (Version 1)
Quarter: 2025Q2

REPORT INFORMATION
  Report Type: Spontaneous
  Country: JP (occurrence: JP)
  Receive Date: 20250605
  Receipt Date: 20250605
  Transmission Date: 20250716
  Serious: Yes (Other)
  Sender: MERCK SHARP & DOHME LLC
  Company Number: JP-009507513-2292306

PATIENT
  Age: 71 Year
  Sex: Male

DRUGS (3)
  1. PEMBROLIZUMAB [Suspect]
     Active Substance: PEMBROLIZUMAB
     Indication: Renal cell carcinoma
     Dosage: 200 MG Q3W (4 COURSES), START OF TREATMENT IN OCTOBER OF UNKNOWN YEAR (DURATION OF TREATMENT REPO...
  2. LENVATINIB MESYLATE [Suspect]
     Active Substance: LENVATINIB MESYLATE
     Indication: Renal cell carcinoma
     Dosage: 14 MG/DAY, START OF TREATMENT IN OCTOBER OF UNKNOWN YEAR STOPPED ON UNKNOWN DATE (DURATION OF TRE...
  3. LENVATINIB MESYLATE [Suspect]
     Active Substance: LENVATINIB MESYLATE
     Indication: Renal cell carcinoma
     Dosage: 10 MG/DAY, START OF TREATMENT ON UNKNOWN DATE, STOPPED ON UNKNOWN DATE ( TOTAL DURATION OF TREATM...

REACTIONS (4)
  - Adrenal insufficiency [Unknown]
  - Proteinuria [Unknown]
  - Nephrectomy [Unknown]
  - Therapy partial responder [Unknown]
